FAERS Safety Report 10410242 (Version 1)
Quarter: 2014Q3

REPORT INFORMATION
  Report Type: Spontaneous
  Country: US (occurrence: None)
  Receive Date: 20140825
  Receipt Date: 20140825
  Transmission Date: 20150326
  Serious: No
  Sender: FDA-Public Use
  Company Number: None

PATIENT
  Age: 67 Year
  Sex: Female
  Weight: 72.58 kg

DRUGS (1)
  1. METRONIDAZOLE. [Suspect]
     Active Substance: METRONIDAZOLE
     Indication: DIVERTICULITIS
     Dosage: 3 TABLETS 3 TIMES DAILY TAKEN BY MOUTH
     Route: 048
     Dates: start: 20140714, end: 20140717

REACTIONS (1)
  - Vision blurred [None]

NARRATIVE: CASE EVENT DATE: 20140717
